FAERS Safety Report 7429379-3 (Version None)
Quarter: 2011Q2

REPORT INFORMATION
  Report Type: 
  Country: None (occurrence: None)
  Receive Date: 20110421
  Receipt Date: 20110408
  Transmission Date: 20111010
  Serious: Yes (Other)
  Sender: FDA-Public Use
  Company Number: JP-MYLANLABS-2011S1007458

PATIENT
  Age: 60 Year
  Sex: Female

DRUGS (6)
  1. PACLITAXEL [Suspect]
     Indication: MALIGNANT ASCITES
     Route: 041
     Dates: start: 20110224
  2. PACLITAXEL [Suspect]
     Route: 041
     Dates: start: 20110324
  3. PACLITAXEL [Suspect]
     Indication: BREAST CANCER
     Route: 041
     Dates: start: 20110224
  4. PACLITAXEL [Suspect]
     Route: 041
     Dates: start: 20110324
  5. GEMZAR [Suspect]
     Indication: BREAST CANCER
     Route: 041
     Dates: start: 20110224
  6. GEMZAR [Suspect]
     Indication: MALIGNANT ASCITES
     Route: 041
     Dates: start: 20110224

REACTIONS (1)
  - PALMAR-PLANTAR ERYTHRODYSAESTHESIA SYNDROME [None]
